FAERS Safety Report 7731662-9 (Version None)
Quarter: 2011Q3

REPORT INFORMATION
  Report Type: 
  Country: None (occurrence: None)
  Receive Date: 20110906
  Receipt Date: 20110825
  Transmission Date: 20111222
  Serious: Yes (Hospitalization)
  Sender: FDA-Public Use
  Company Number: FR-PFIZER INC-2011203108

PATIENT
  Age: 86 Year
  Sex: Female

DRUGS (6)
  1. TRIMEBUTINE [Concomitant]
     Dosage: UNK
  2. ESCITALOPRAM OXALATE [Concomitant]
     Dosage: UNK
  3. CORDARONE [Suspect]
     Indication: ATRIAL FIBRILLATION
     Dosage: 200 MG, DAILY
     Route: 048
     Dates: end: 20110201
  4. ASPIRIN [Concomitant]
     Dosage: UNK
  5. FLECAINIDE ACETATE [Concomitant]
     Dosage: UNK
  6. EDUCTYL [Concomitant]
     Dosage: UNK

REACTIONS (1)
  - LUNG DISORDER [None]
